FAERS Safety Report 7985349-8 (Version None)
Quarter: 2011Q4

REPORT INFORMATION
  Report Type: 
  Country: None (occurrence: None)
  Receive Date: 20111216
  Receipt Date: 20110920
  Transmission Date: 20120403
  Serious: No
  Sender: FDA-Public Use
  Company Number: US-ABBOTT-11P-163-0856973-00

PATIENT
  Sex: Female
  Weight: 83.99 kg

DRUGS (6)
  1. ZOCOR [Concomitant]
     Indication: BLOOD TRIGLYCERIDES INCREASED
  2. COZAAR [Concomitant]
     Indication: HYPERTENSION
  3. TRILIPIX [Suspect]
     Indication: BLOOD TRIGLYCERIDES INCREASED
     Dates: start: 20110725
  4. CARDIZEM [Concomitant]
     Indication: HYPERTENSION
  5. GLUCOPHAGE [Concomitant]
     Indication: DIABETES MELLITUS
  6. METFORMIN HCL [Concomitant]
     Indication: DIABETES MELLITUS

REACTIONS (1)
  - ALOPECIA [None]
